FAERS Safety Report 18898986 (Version 6)
Quarter: 2021Q3

REPORT INFORMATION
  Report Type: Report from Study
  Country: US (occurrence: US)
  Receive Date: 20210216
  Receipt Date: 20210804
  Transmission Date: 20211014
  Serious: Yes (Life-Threatening, Other)
  Sender: FDA-Public Use
  Company Number: US-UCBSA-2020051630

PATIENT
  Sex: Female
  Weight: 66 kg

DRUGS (3)
  1. LACOSAMIDE. [Suspect]
     Active Substance: LACOSAMIDE
     Indication: HEADACHE
     Dosage: 100 MILLIGRAM, 2X/DAY (BID)
  2. LACOSAMIDE. [Suspect]
     Active Substance: LACOSAMIDE
     Indication: SEIZURE
  3. LACOSAMIDE. [Suspect]
     Active Substance: LACOSAMIDE
     Indication: EPILEPSY
     Dosage: 2 DAILY

REACTIONS (12)
  - Facial paralysis [Not Recovered/Not Resolved]
  - Arthritis [Not Recovered/Not Resolved]
  - Product use in unapproved indication [Unknown]
  - Deafness [Not Recovered/Not Resolved]
  - Brain injury [Unknown]
  - Tremor [Not Recovered/Not Resolved]
  - Treatment noncompliance [Unknown]
  - Memory impairment [Unknown]
  - Migraine [Not Recovered/Not Resolved]
  - Therapeutic response unexpected [Unknown]
  - Trigeminal nerve disorder [Not Recovered/Not Resolved]
  - Trigeminal neuralgia [Not Recovered/Not Resolved]

NARRATIVE: CASE EVENT DATE: 2016
